FAERS Safety Report 10152092 (Version 1)
Quarter: 2014Q2

REPORT INFORMATION
  Report Type: Spontaneous
  Country: US (occurrence: US)
  Receive Date: 20140505
  Receipt Date: 20140505
  Transmission Date: 20141212
  Serious: No
  Sender: FDA-Public Use
  Company Number: US-BRISTOL-MYERS SQUIBB COMPANY-20565966

PATIENT
  Sex: Male

DRUGS (1)
  1. FARXIGA [Suspect]

REACTIONS (2)
  - Stomatitis [Unknown]
  - Mouth ulceration [Unknown]
